FAERS Safety Report 8447267 (Version 6)
Quarter: 2013Q1

REPORT INFORMATION
  Report Type: Spontaneous
  Country: US (occurrence: US)
  Receive Date: 20120308
  Receipt Date: 20130211
  Transmission Date: 20140127
  Serious: Yes (Hospitalization)
  Sender: FDA-Public Use
  Company Number: US-JNJFOC-20120300550

PATIENT
  Sex: Male
  Weight: 108.86 kg

DRUGS (7)
  1. REMICADE [Suspect]
     Indication: COLITIS ULCERATIVE
     Route: 042
  2. REMICADE [Suspect]
     Indication: COLITIS ULCERATIVE
     Route: 042
     Dates: start: 201009
  3. EFFIENT [Suspect]
     Indication: ANTICOAGULANT THERAPY
     Route: 048
     Dates: start: 2012, end: 2012
  4. BABY ASPIRIN [Suspect]
     Indication: PRODUCT USED FOR UNKNOWN INDICATION
     Route: 065
     Dates: start: 2012
  5. BALSALAZINE DISODIUM [Concomitant]
     Indication: COLITIS ULCERATIVE
     Route: 065
  6. LORTAB [Concomitant]
     Indication: PAIN
     Route: 048
     Dates: start: 2006
  7. ALL OTHER THERAPEUTICS [Concomitant]
     Route: 065

REACTIONS (5)
  - Coronary artery disease [Unknown]
  - Abnormal faeces [Not Recovered/Not Resolved]
  - Feeling abnormal [Recovered/Resolved]
  - Increased tendency to bruise [Not Recovered/Not Resolved]
  - Haematochezia [Not Recovered/Not Resolved]
